FAERS Safety Report 11530625 (Version 1)
Quarter: 2015Q3

REPORT INFORMATION
  Report Type: Spontaneous
  Country: US (occurrence: US)
  Receive Date: 20150903
  Receipt Date: 20150903
  Transmission Date: 20151125
  Serious: No
  Sender: FDA-Public Use
  Company Number: US-ELI_LILLY_AND_COMPANY-US200903003896

PATIENT
  Age: 51 Year
  Sex: Female
  Weight: 108.84 kg

DRUGS (6)
  1. BYETTA [Concomitant]
     Active Substance: EXENATIDE
     Indication: TYPE 2 DIABETES MELLITUS
     Dosage: 10 UG, 2/D
     Dates: start: 200708
  2. HUMALOG MIX75/25 [Suspect]
     Active Substance: INSULIN LISPRO
  3. ASPIRIN                            /00002701/ [Concomitant]
     Active Substance: ASPIRIN
     Dosage: 81 MG, DAILY (1/D)
  4. BYETTA [Concomitant]
     Active Substance: EXENATIDE
     Dosage: 5 UG, 2/D
  5. OMACOR [Concomitant]
     Active Substance: OMEGA-3-ACID ETHYL ESTERS
  6. DIOVAN [Concomitant]
     Active Substance: VALSARTAN

REACTIONS (12)
  - Weight decreased [Unknown]
  - Malaise [Recovered/Resolved]
  - Nausea [Recovered/Resolved]
  - Tooth disorder [Unknown]
  - Decreased appetite [Unknown]
  - Flushing [Recovering/Resolving]
  - Vomiting [Recovered/Resolved]
  - Infection [Unknown]
  - Skin burning sensation [Recovering/Resolving]
  - Eye irritation [Recovering/Resolving]
  - Pruritus generalised [Recovering/Resolving]
  - Blood glucose increased [Unknown]

NARRATIVE: CASE EVENT DATE: 200708
